FAERS Safety Report 17028217 (Version 3)
Quarter: 2020Q1

REPORT INFORMATION
  Report Type: Spontaneous
  Country: US (occurrence: US)
  Receive Date: 20191113
  Receipt Date: 20200120
  Transmission Date: 20200409
  Serious: Yes (Hospitalization)
  Sender: FDA-Public Use
  Company Number: US-TAKEDA-2019TUS064076

PATIENT
  Sex: Male

DRUGS (3)
  1. NINLARO [Suspect]
     Active Substance: IXAZOMIB CITRATE
     Indication: PLASMA CELL MYELOMA
     Dosage: 3 MILLIGRAM
     Route: 048
  2. POMALYST [Concomitant]
     Active Substance: POMALIDOMIDE
     Dosage: 4 MILLIGRAM
     Route: 065
  3. ZOVIRAX [Concomitant]
     Active Substance: ACYCLOVIR
     Dosage: UNK
     Route: 065

REACTIONS (4)
  - Varicella [Unknown]
  - Pneumonia [Unknown]
  - Constipation [Recovering/Resolving]
  - Off label use [Unknown]
